FAERS Safety Report 9947341 (Version 1)
Quarter: 2014Q1

REPORT INFORMATION
  Report Type: Report from Study
  Country: US (occurrence: US)
  Receive Date: 20140303
  Receipt Date: 20140303
  Transmission Date: 20141002
  Serious: No
  Sender: FDA-Public Use
  Company Number: US-ABBVIE-13P-163-1062321-00

PATIENT
  Age: 56 Year
  Sex: Female

DRUGS (5)
  1. HUMIRA [Suspect]
     Indication: PSORIATIC ARTHROPATHY
     Route: 058
  2. LOSARTAN [Concomitant]
     Indication: HYPERTENSION
  3. METFORMIN [Concomitant]
     Indication: GLUCOSE TOLERANCE IMPAIRED
  4. HYDROCODONE [Concomitant]
     Indication: ARTHRALGIA
  5. NAPROXEN [Concomitant]
     Indication: ARTHRALGIA

REACTIONS (3)
  - Device malfunction [Recovering/Resolving]
  - Drug dose omission [Recovering/Resolving]
  - Injection site pain [Recovering/Resolving]
